FAERS Safety Report 10776066 (Version 1)
Quarter: 2015Q1

REPORT INFORMATION
  Report Type: Spontaneous
  Country: US (occurrence: None)
  Receive Date: 20150205
  Receipt Date: 20150205
  Transmission Date: 20150721
  Serious: No
  Sender: FDA-Public Use
  Company Number: None

PATIENT
  Sex: Male

DRUGS (1)
  1. ELIGARD [Suspect]
     Active Substance: LEUPROLIDE ACETATE
     Dosage: STRENGTH: 45 MG??

REACTIONS (4)
  - Catheter management [None]
  - Fatigue [None]
  - Malaise [None]
  - Decreased appetite [None]

NARRATIVE: CASE EVENT DATE: 2014
